FAERS Safety Report 6598290-2 (Version None)
Quarter: 2010Q1

REPORT INFORMATION
  Report Type: 
  Country: None (occurrence: None)
  Receive Date: 20100224
  Receipt Date: 20050225
  Transmission Date: 20100710
  Serious: No
  Sender: FDA-Public Use
  Company Number: US-ALLERGAN-200502099

PATIENT
  Age: 46 Year
  Sex: Female
  Weight: 56.818 kg

DRUGS (2)
  1. BOTOX COSMETIC [Suspect]
     Indication: SKIN WRINKLING
     Dosage: 35UNITS, PRN
     Route: 030
     Dates: end: 20050203
  2. BOTOX COSMETIC [Suspect]
     Dosage: 35UNITS, PRN
     Route: 030
     Dates: end: 20050203

REACTIONS (4)
  - DRUG INEFFECTIVE [None]
  - INJECTION SITE HAEMATOMA [None]
  - INJECTION SITE REACTION [None]
  - THERAPEUTIC RESPONSE DECREASED [None]
